FAERS Safety Report 15299425 (Version 4)
Quarter: 2020Q1

REPORT INFORMATION
  Report Type: Report from Study
  Country: US (occurrence: US)
  Receive Date: 20180821
  Receipt Date: 20200324
  Transmission Date: 20200409
  Serious: Yes (Death, Hospitalization, Other)
  Sender: FDA-Public Use
  Company Number: PHEH2018US032688

PATIENT
  Age: 17 Year
  Sex: Male
  Weight: 59.7 kg

DRUGS (3)
  1. KYMRIAH [Suspect]
     Active Substance: TISAGENLECLEUCEL
     Indication: ACUTE LYMPHOCYTIC LEUKAEMIA RECURRENT
     Dosage: 0.5X 10^8 CART POSITIVE CELLS
     Route: 042
     Dates: start: 20180705
  2. RITUXIMAB. [Concomitant]
     Active Substance: RITUXIMAB
     Indication: PRODUCT USED FOR UNKNOWN INDICATION
     Route: 065
  3. CYCLOPHOSPHAMIDE. [Concomitant]
     Active Substance: CYCLOPHOSPHAMIDE
     Indication: PRODUCT USED FOR UNKNOWN INDICATION
     Route: 065

REACTIONS (22)
  - Malignant neoplasm progression [Unknown]
  - Fungal infection [Unknown]
  - Upper respiratory tract infection [Unknown]
  - Hepatic failure [Unknown]
  - Haemorrhage intracranial [Fatal]
  - Blood fibrinogen increased [Unknown]
  - C-reactive protein increased [Recovered/Resolved]
  - Hepatic enzyme increased [Recovered/Resolved]
  - Pyrexia [Recovered/Resolved]
  - Serum ferritin increased [Recovered/Resolved]
  - Fibrin D dimer increased [Recovered/Resolved]
  - Cytokine release syndrome [Recovered/Resolved]
  - Headache [Recovered/Resolved]
  - Hypotension [Recovered/Resolved]
  - Infection [Unknown]
  - Paraesthesia [Recovered/Resolved]
  - Disseminated intravascular coagulation [Unknown]
  - Acute lymphocytic leukaemia recurrent [Unknown]
  - Clostridium difficile infection [Recovered/Resolved]
  - Hepatotoxicity [Unknown]
  - Minimal residual disease [Unknown]
  - Neutropenia [Unknown]

NARRATIVE: CASE EVENT DATE: 20180713
